FAERS Safety Report 25740347 (Version 1)
Quarter: 2025Q3

REPORT INFORMATION
  Report Type: Spontaneous
  Country: US (occurrence: US)
  Receive Date: 20250829
  Receipt Date: 20250829
  Transmission Date: 20251020
  Serious: No
  Sender: PFIZER
  Company Number: US-PFIZER INC-PV202500104612

PATIENT
  Age: 67 Year
  Sex: Female

DRUGS (2)
  1. RIFABUTIN [Suspect]
     Active Substance: RIFABUTIN
     Indication: Mycobacterium avium complex infection
     Dates: start: 20250709, end: 20250811
  2. RIFAMPIN [Suspect]
     Active Substance: RIFAMPIN
     Indication: Mycobacterium avium complex infection
     Dates: start: 20250709, end: 20250811

REACTIONS (1)
  - Drug intolerance [Unknown]
